FAERS Safety Report 9578144 (Version 1)
Quarter: 2013Q4

REPORT INFORMATION
  Report Type: Spontaneous
  Country: US (occurrence: US)
  Receive Date: 20131001
  Receipt Date: 20131001
  Transmission Date: 20140711
  Serious: No
  Sender: FDA-Public Use
  Company Number: US-AMGEN-USASP2013011396

PATIENT
  Sex: Female
  Weight: 63.49 kg

DRUGS (8)
  1. ENBREL [Suspect]
     Indication: RHEUMATOID ARTHRITIS
     Dosage: 50 MG, QWK
  2. CYMBALTA [Concomitant]
     Dosage: 20 MG, UNK
  3. LYRICA [Concomitant]
     Dosage: 100 MG, UNK
  4. ARAVA [Concomitant]
     Dosage: 10 MG, UNK
  5. ADVAIR [Concomitant]
     Dosage: 100/50
  6. FOLIC ACID [Concomitant]
     Dosage: UNK
  7. RESTORIL                           /00054301/ [Concomitant]
     Dosage: 15 MG, UNK
  8. MULTIVITAMINS, PLAIN [Concomitant]
     Dosage: UNK

REACTIONS (3)
  - Swelling [Unknown]
  - Tooth extraction [Unknown]
  - Rheumatoid arthritis [Unknown]
